FAERS Safety Report 8481411-4 (Version None)
Quarter: 2012Q3

REPORT INFORMATION
  Report Type: 
  Country: None (occurrence: None)
  Receive Date: 20120702
  Receipt Date: 20120622
  Transmission Date: 20120928
  Serious: Yes (Hospitalization)
  Sender: FDA-Public Use
  Company Number: US-BAYER-2011-033390

PATIENT
  Age: 43 Year
  Sex: Female
  Weight: 75 kg

DRUGS (21)
  1. YAZ [Suspect]
     Indication: PREMENSTRUAL SYNDROME
     Dosage: UNK
     Dates: start: 20050701, end: 20080401
  2. NALOXONE [Concomitant]
     Dosage: 0.2 MG, UNK
     Route: 042
     Dates: start: 20080409
  3. ULTRAM [Concomitant]
  4. MORPHINE [Concomitant]
     Dosage: UNK
     Route: 042
     Dates: start: 20080409
  5. ACETYLSALICYLIC ACID/PARACETAMOL [Concomitant]
     Indication: BACK PAIN
  6. ANCEF [Concomitant]
     Dosage: 2 G, UNK
     Route: 042
     Dates: start: 20080409
  7. HYOSCYAMINE SULFATE [Concomitant]
     Dosage: 0.125 MG, UNK
     Dates: start: 20080116
  8. TRAMADOL HCL CF [Concomitant]
     Dosage: 50 MG, UNK
     Dates: start: 20080116
  9. FENTANYL [Concomitant]
     Dosage: 125 ?G, UNK
     Route: 042
     Dates: start: 20080201
  10. TORADOL [Concomitant]
     Dosage: 30 MG, UNK
     Route: 042
     Dates: start: 20080411
  11. ACETAMINOPHEN AND HYDROCODONE BITARTRATE [Concomitant]
     Dosage: 500 MG, UNK
     Dates: start: 20080411
  12. NITROFURANTOINUM [Concomitant]
     Dosage: 100 MG, UNK
     Dates: start: 20080317
  13. ZOFRAN [Concomitant]
     Dosage: UNK
     Route: 042
     Dates: start: 20080409
  14. CLEOCIN HYDROCHLORIDE [Concomitant]
     Dosage: 900 MG, UNK
     Route: 042
     Dates: start: 20080409
  15. COLACE [Concomitant]
     Dosage: 100 MG, UNK
     Route: 048
     Dates: start: 20080410
  16. BENADRYL [Concomitant]
     Dosage: 25 MG, UNK
     Route: 042
     Dates: start: 20080410
  17. PREVACID [Concomitant]
     Indication: GASTROOESOPHAGEAL REFLUX DISEASE
     Dosage: 30 MG, QD
     Route: 048
     Dates: start: 20060101, end: 20080101
  18. IBUPROFEN [Concomitant]
     Dosage: 800 MG, UNK
     Dates: start: 20080411
  19. VERSED [Concomitant]
     Dosage: 7 MG, UNK
     Route: 042
     Dates: start: 20080201
  20. DUROMORPH [Concomitant]
     Dosage: 0.4 ?G, UNK
     Route: 008
     Dates: start: 20080409
  21. YASMIN [Suspect]
     Indication: PREMENSTRUAL SYNDROME

REACTIONS (3)
  - PAIN [None]
  - DEEP VEIN THROMBOSIS [None]
  - PULMONARY EMBOLISM [None]
